FAERS Safety Report 5314329-6 (Version None)
Quarter: 2007Q2

REPORT INFORMATION
  Report Type: 
  Country: None (occurrence: None)
  Receive Date: 20070502
  Receipt Date: 20070427
  Transmission Date: 20071010
  Serious: Yes (Life-Threatening, Other)
  Sender: FDA-Public Use
  Company Number: ZA-JNJFOC-20061002875

PATIENT
  Sex: Female
  Weight: 75.6 kg

DRUGS (8)
  1. TMC114 [Suspect]
     Route: 048
  2. TMC114 [Suspect]
     Indication: HIV INFECTION
     Route: 048
  3. RITONAVIR [Suspect]
     Indication: HIV INFECTION
     Route: 048
  4. TRUVADA [Suspect]
     Indication: HIV INFECTION
     Route: 048
  5. SINUMAX ALLERGY SINUS [Concomitant]
     Route: 048
  6. DRIXINE NASAL SPRAY [Concomitant]
     Dosage: 2 SPRAYS EACH NOSTRIL
     Route: 045
  7. CIPLA ACTIN [Concomitant]
     Route: 048
  8. LEGALON [Concomitant]
     Indication: HEPATITIS
     Route: 048

REACTIONS (1)
  - TRANSAMINASES INCREASED [None]
